FAERS Safety Report 9524803 (Version 2)
Quarter: 2013Q4

REPORT INFORMATION
  Report Type: Spontaneous
  Country: US (occurrence: US)
  Receive Date: 20130916
  Receipt Date: 20131023
  Transmission Date: 20140711
  Serious: No
  Sender: FDA-Public Use
  Company Number: US-VERTEX PHARMACEUTICALS INC-2013-009423

PATIENT
  Age: 60 Year
  Sex: Male
  Weight: 98.87 kg

DRUGS (8)
  1. INCIVEK [Suspect]
     Indication: HEPATITIS C
     Dosage: 750 MG, TID
     Route: 048
     Dates: start: 20130801, end: 20130905
  2. RIBAVIRIN [Suspect]
     Indication: HEPATITIS C
     Dosage: 600 MG, BID
     Dates: start: 20130801, end: 20130910
  3. RIBAVIRIN [Suspect]
     Dosage: 200MG QAM, 400MG QPM
     Dates: start: 20130910, end: 20130927
  4. PEGASYS [Suspect]
     Indication: HEPATITIS C
     Dosage: 180 ?G, QW
     Route: 058
     Dates: start: 20130801, end: 20131003
  5. HCTZ [Concomitant]
  6. LISINOPRIL [Concomitant]
  7. CITALOPRAM [Concomitant]
  8. LEVOTHYROXINE [Concomitant]

REACTIONS (1)
  - Eczema [Not Recovered/Not Resolved]
